FAERS Safety Report 6103819-4 (Version None)
Quarter: 2009Q1

REPORT INFORMATION
  Report Type: 
  Country: None (occurrence: None)
  Receive Date: 20090305
  Receipt Date: 20090303
  Transmission Date: 20090719
  Serious: Yes (Death)
  Sender: FDA-Public Use
  Company Number: US-JNJFOC-20090300990

PATIENT
  Sex: Female

DRUGS (3)
  1. RISPERDAL [Suspect]
     Indication: PSYCHOTIC DISORDER
     Route: 048
  2. CYMBALTA [Concomitant]
     Route: 048
  3. LEXAPRO [Concomitant]
     Route: 048

REACTIONS (2)
  - ADVERSE EVENT [None]
  - COMA [None]
